FAERS Safety Report 22127985 (Version 1)
Quarter: 2023Q1

REPORT INFORMATION
  Report Type: Spontaneous
  Country: US (occurrence: US)
  Receive Date: 20230323
  Receipt Date: 20230323
  Transmission Date: 20230417
  Serious: No
  Sender: FDA-Public Use
  Company Number: US-ALLERGAN-2237240US

PATIENT
  Age: 73 Year
  Sex: Female

DRUGS (2)
  1. LINZESS [Suspect]
     Active Substance: LINACLOTIDE
     Indication: Gastrointestinal motility disorder
  2. DUPIXENT [Suspect]
     Active Substance: DUPILUMAB
     Indication: Dermatitis atopic
     Dosage: 600 MG ONCE, FOLLOWED BY 300 MG Q O W, VIA PREFILLED PEN
     Route: 058
     Dates: start: 20220505

REACTIONS (10)
  - Gastrointestinal motility disorder [Unknown]
  - Muscle tightness [Recovering/Resolving]
  - Condition aggravated [Unknown]
  - Sleep disorder [Recovering/Resolving]
  - Diverticulum [Unknown]
  - Muscle spasms [Recovered/Resolved]
  - Paraesthesia [Recovered/Resolved]
  - Rash [Recovered/Resolved]
  - Abdominal pain [Recovered/Resolved]
  - Diarrhoea [Recovered/Resolved]

NARRATIVE: CASE EVENT DATE: 20220916
